FAERS Safety Report 25777929 (Version 1)
Quarter: 2025Q3

REPORT INFORMATION
  Report Type: Spontaneous
  Country: AU (occurrence: AU)
  Receive Date: 20250909
  Receipt Date: 20250909
  Transmission Date: 20251020
  Serious: Yes (Other)
  Sender: KARYOPHARM THERAPEUTICS
  Company Number: AU-ANTENGENE-20250803324

PATIENT

DRUGS (1)
  1. SELINEXOR [Suspect]
     Active Substance: SELINEXOR
     Indication: Malignant neoplasm of unknown primary site

REACTIONS (2)
  - Cognitive disorder [Recovered/Resolved]
  - Nausea [Unknown]
